FAERS Safety Report 9850803 (Version 1)
Quarter: 2014Q1

REPORT INFORMATION
  Report Type: Report from Study
  Country: US (occurrence: US)
  Receive Date: 20140128
  Receipt Date: 20140128
  Transmission Date: 20141002
  Serious: Yes (Hospitalization, Other)
  Sender: FDA-Public Use
  Company Number: US-ABBVIE-14P-163-1191813-00

PATIENT
  Age: 57 Year
  Sex: Female

DRUGS (8)
  1. HUMIRA [Suspect]
     Indication: RHEUMATOID ARTHRITIS
     Dates: start: 201307
  2. COUMADIN [Concomitant]
     Indication: PULMONARY EMBOLISM
     Dosage: DEPENDENT ON INR, USUALLY AROUND 4MG BY MOUTH DAILY
     Route: 048
  3. XANAX [Concomitant]
     Indication: ANXIETY
     Route: 048
  4. CYMBALTA [Concomitant]
     Indication: DEPRESSION
     Route: 048
  5. CYMBALTA [Concomitant]
     Indication: SCAPULA FRACTURE
  6. VICODIN [Concomitant]
     Indication: PAIN
     Route: 048
  7. MORPHINE [Concomitant]
     Indication: PAIN
  8. UNKNOWN MEDICATION [Concomitant]
     Indication: INSOMNIA

REACTIONS (8)
  - Head injury [Recovering/Resolving]
  - Loss of consciousness [Recovering/Resolving]
  - Fall [Recovering/Resolving]
  - Pain [Recovering/Resolving]
  - Insomnia [Recovering/Resolving]
  - Incision site erythema [Recovering/Resolving]
  - Rash [Recovering/Resolving]
  - Eczema [Recovered/Resolved]
